FAERS Safety Report 4337697-0 (Version None)
Quarter: 2004Q2

REPORT INFORMATION
  Report Type: 
  Country: None (occurrence: None)
  Receive Date: 20040413
  Receipt Date: 20040318
  Transmission Date: 20050107
  Serious: Yes (Hospitalization, Other)
  Sender: FDA-Public Use
  Company Number: US-MERCK-0403USA01904

PATIENT
  Age: 76 Year
  Sex: Male
  Weight: 78 kg

DRUGS (5)
  1. COREG [Concomitant]
     Route: 065
  2. LASIX [Concomitant]
     Route: 065
  3. ALTACE [Concomitant]
     Route: 065
  4. VIOXX [Suspect]
     Indication: ANALGESIC EFFECT
     Route: 048
     Dates: start: 20040220, end: 20040314
  5. VIOXX [Suspect]
     Indication: ARTHROPATHY
     Route: 048
     Dates: start: 20040220, end: 20040314

REACTIONS (2)
  - CARDIAC FAILURE CONGESTIVE [None]
  - CARDIOMYOPATHY [None]
